FAERS Safety Report 17858611 (Version 2)
Quarter: 2020Q2

REPORT INFORMATION
  Report Type: Report from Study
  Country: None (occurrence: US)
  Receive Date: 20200604
  Receipt Date: 20200605
  Transmission Date: 20200714
  Serious: Yes (Hospitalization)
  Sender: FDA-Public Use
  Company Number: US-US WORLDMEDS, LLC-USW202001-000085

PATIENT
  Age: 77 Year
  Sex: Male

DRUGS (2)
  1. OXYGEN. [Suspect]
     Active Substance: OXYGEN
     Dosage: ^5^
  2. APOKYN [Suspect]
     Active Substance: APOMORPHINE HYDROCHLORIDE
     Indication: PARKINSON^S DISEASE
     Dates: start: 2019, end: 202001

REACTIONS (2)
  - Dyspnoea [Not Recovered/Not Resolved]
  - Tremor [Recovered/Resolved]

NARRATIVE: CASE EVENT DATE: 201912
